FAERS Safety Report 11197350 (Version 2)
Quarter: 2015Q2

REPORT INFORMATION
  Report Type: Report from Study
  Country: US (occurrence: US)
  Receive Date: 20150617
  Receipt Date: 20150625
  Transmission Date: 20150821
  Serious: Yes (Other)
  Sender: FDA-Public Use
  Company Number: US-GLAXOSMITHKLINE-US2015084225

PATIENT
  Age: 58 Year
  Sex: Male
  Weight: 85.27 kg

DRUGS (5)
  1. PLACEBO [Suspect]
     Active Substance: UNSPECIFIED INGREDIENT
     Indication: SMOKING CESSATION THERAPY
     Dosage: DOSAGE FORM: SPRAY
     Route: 048
     Dates: start: 20150219
  2. LANTUS [Concomitant]
     Active Substance: INSULIN GLARGINE
     Indication: PRE-EXISTING CONDITION IMPROVED
     Dosage: DOSAGE FORM: UNKNOWN, 20 UNIT
     Route: 058
     Dates: start: 201312
  3. ASPIRIN. [Concomitant]
     Active Substance: ASPIRIN
     Indication: PROPHYLAXIS
     Dosage: DOSAGE FORM: UNSPECIFIED
     Route: 048
     Dates: start: 2012
  4. BLINDED NICOTINE [Suspect]
     Active Substance: NICOTINE
     Indication: SMOKING CESSATION THERAPY
     Dosage: DOSAGE FORM: SPRAY
     Route: 048
     Dates: start: 20150219
  5. GLYBURIDE. [Concomitant]
     Active Substance: GLYBURIDE
     Indication: PRE-EXISTING CONDITION IMPROVED
     Route: 048
     Dates: start: 2010

REACTIONS (1)
  - Pancreatic carcinoma [Unknown]

NARRATIVE: CASE EVENT DATE: 20150519
